FAERS Safety Report 10733344 (Version 1)
Quarter: 2015Q1

REPORT INFORMATION
  Report Type: Spontaneous
  Country: US (occurrence: None)
  Receive Date: 20150120
  Receipt Date: 20150120
  Transmission Date: 20150721
  Serious: Yes (Other)
  Sender: FDA-Public Use
  Company Number: US-H14001-15-00038

PATIENT
  Age: 03 Year
  Sex: Male
  Weight: 17.6 kg

DRUGS (12)
  1. SODIUM CHLORIDE. [Concomitant]
     Active Substance: SODIUM CHLORIDE
  2. TOPIRAMATE. [Concomitant]
     Active Substance: TOPIRAMATE
  3. PHENOBARBITAL (PHENOBARBITAL) [Suspect]
     Active Substance: PHENOBARBITAL
     Indication: PRODUCT USED FOR UNKNOWN INDICATION
     Route: 040
  4. LEVETIRACETAM. [Concomitant]
     Active Substance: LEVETIRACETAM
  5. IBUPROFEN. [Concomitant]
     Active Substance: IBUPROFEN
  6. MIDAZOLAM [Concomitant]
     Active Substance: MIDAZOLAM\MIDAZOLAM HYDROCHLORIDE
  7. LACOSAMIDE [Concomitant]
     Active Substance: LACOSAMIDE
  8. EPINEPHRINE. [Concomitant]
     Active Substance: EPINEPHRINE
  9. PENTOBARBITAL (PENTOBARBITAL) [Suspect]
     Active Substance: PENTOBARBITAL
     Indication: SEIZURE
     Route: 042
  10. FOSPHENYTOIN [Concomitant]
     Active Substance: FOSPHENYTOIN\FOSPHENYTOIN SODIUM
  11. LORAZEPAM (LORAZEPAM) (UNKNOWN) (LORAZEPAM) [Suspect]
     Active Substance: LORAZEPAM
     Indication: SEIZURE
     Dosage: TWO 0.17 MG/KG INTRAVENOUS BOLUS, INTRAVENOUS
     Route: 040
  12. AMOXICILLIN. [Concomitant]
     Active Substance: AMOXICILLIN

REACTIONS (5)
  - Hypotension [None]
  - Lactic acidosis [None]
  - Blood glucose increased [None]
  - Respiratory depression [None]
  - Metabolic acidosis [None]
